FAERS Safety Report 15275963 (Version 2)
Quarter: 2018Q3

REPORT INFORMATION
  Report Type: Spontaneous
  Country: AR (occurrence: AR)
  Receive Date: 20180814
  Receipt Date: 20180828
  Transmission Date: 20181010
  Serious: Yes (Death, Hospitalization)
  Sender: FDA-Public Use
  Company Number: AR-ACTELION-A-CH2018-177347

PATIENT
  Age: 55 Year
  Sex: Male
  Weight: 52 kg

DRUGS (4)
  1. OPSUMIT [Suspect]
     Active Substance: MACITENTAN
     Indication: PULMONARY ARTERIAL HYPERTENSION
     Dosage: 10 MG, QD
     Route: 048
     Dates: start: 2015
  2. FUROSEMIDE. [Concomitant]
     Active Substance: FUROSEMIDE
     Indication: PULMONARY ARTERIAL HYPERTENSION
     Dosage: 40 UNK, QD
     Route: 048
     Dates: start: 2013
  3. SPIRONOLACTONE. [Concomitant]
     Active Substance: SPIRONOLACTONE
     Indication: PULMONARY ARTERIAL HYPERTENSION
     Dosage: 25 UNK, QD
     Route: 048
     Dates: start: 2013
  4. SILDENAFIL. [Concomitant]
     Active Substance: SILDENAFIL
     Indication: PULMONARY ARTERIAL HYPERTENSION
     Dosage: 100 UNK, TID
     Route: 048
     Dates: start: 2013

REACTIONS (2)
  - Respiratory failure [Fatal]
  - Pneumonia [Fatal]

NARRATIVE: CASE EVENT DATE: 20180713
